FAERS Safety Report 13272883 (Version 1)
Quarter: 2017Q1

REPORT INFORMATION
  Report Type: Spontaneous
  Country: US (occurrence: US)
  Receive Date: 20170224
  Receipt Date: 20170224
  Transmission Date: 20170428
  Serious: No
  Sender: FDA-Public Use
  Company Number: None

PATIENT
  Age: 58 Year
  Sex: Female

DRUGS (3)
  1. NUCALA [Suspect]
     Active Substance: MEPOLIZUMAB
     Indication: FIBROMYALGIA
  2. NUCALA [Suspect]
     Active Substance: MEPOLIZUMAB
     Indication: ARTHROPATHY
  3. NUCALA [Suspect]
     Active Substance: MEPOLIZUMAB
     Indication: ASTHMA

REACTIONS (2)
  - Eczema [None]
  - Condition aggravated [None]

NARRATIVE: CASE EVENT DATE: 20170224
